FAERS Safety Report 6517272-X (Version None)
Quarter: 2009Q4

REPORT INFORMATION
  Report Type: 
  Country: None (occurrence: None)
  Receive Date: 20091223
  Receipt Date: 20091209
  Transmission Date: 20100525
  Serious: Yes (Other)
  Sender: FDA-Public Use
  Company Number: US-PFIZER INC-2009307563

PATIENT
  Age: 94 Year
  Sex: Female

DRUGS (9)
  1. ZYVOX [Suspect]
     Indication: URINARY TRACT INFECTION
     Dosage: 600 MG, FREQUENCY UNK
  2. SYNTHROID [Concomitant]
  3. KLONOPIN [Concomitant]
     Dosage: 0.5 MG, 1X/DAY
  4. LASIX [Concomitant]
  5. METOPROLOL [Concomitant]
  6. PROTONIX [Concomitant]
  7. POTASSIUM [Concomitant]
  8. MELATONIN [Concomitant]
  9. ONDANSETRON [Concomitant]
     Indication: NAUSEA

REACTIONS (5)
  - APHASIA [None]
  - CONVULSION [None]
  - TRANSIENT ISCHAEMIC ATTACK [None]
  - TREMOR [None]
  - VERTIGO [None]
